FAERS Safety Report 14601992 (Version 1)
Quarter: 2018Q1

REPORT INFORMATION
  Report Type: Other
  Country: DE (occurrence: DE)
  Receive Date: 20180306
  Receipt Date: 20180306
  Transmission Date: 20180509
  Serious: Yes (Other)
  Sender: FDA-Public Use
  Company Number: DE-MACLEODS PHARMACEUTICALS US LTD-MAC2018010782

PATIENT

DRUGS (3)
  1. RISPERIDON [Suspect]
     Active Substance: RISPERIDONE
     Indication: SCHIZOPHRENIA
     Dosage: 3 MG, QD, 3 [MG/D ]/ 1-0-2 MG/D, 0. - 41.5. GESTATIONAL WEEK
     Route: 048
     Dates: start: 20161121, end: 20170909
  2. FOLIC ACID. [Concomitant]
     Active Substance: FOLIC ACID
     Indication: PROPHYLAXIS OF NEURAL TUBE DEFECT
     Dosage: UNK, 0. - 41.5. GESTATIONAL WEEK
     Route: 048
     Dates: start: 20161121, end: 20170909
  3. ARIPIPRAZOLE  5 MG [Suspect]
     Active Substance: ARIPIPRAZOLE
     Indication: SCHIZOPHRENIA
     Dosage: 5 MG, QD,( 0. - 41.5. GESTATIONAL WEEK)
     Route: 048
     Dates: start: 20161121, end: 20170909

REACTIONS (2)
  - Exposure during pregnancy [Recovered/Resolved]
  - Gestational diabetes [Recovered/Resolved]
